FAERS Safety Report 6818201-1 (Version None)
Quarter: 2010Q3

REPORT INFORMATION
  Report Type: 
  Country: None (occurrence: None)
  Receive Date: 20100706
  Receipt Date: 20070704
  Transmission Date: 20110219
  Serious: No
  Sender: FDA-Public Use
  Company Number: US-PFIZER INC-2007053938

PATIENT
  Sex: Male
  Weight: 88.636 kg

DRUGS (7)
  1. ZITHROMAX [Suspect]
     Indication: PROPHYLAXIS
     Dates: start: 20070622, end: 20070625
  2. ZITHROMAX [Suspect]
     Dates: start: 20070625
  3. ATENOLOL [Concomitant]
  4. AVANDIA [Concomitant]
  5. VALSARTAN [Concomitant]
  6. GLUCOPHAGE [Concomitant]
  7. LEVOTHYROXINE SODIUM [Concomitant]

REACTIONS (1)
  - URTICARIA [None]
